FAERS Safety Report 7465351-5 (Version None)
Quarter: 2011Q2

REPORT INFORMATION
  Report Type: 
  Country: None (occurrence: None)
  Receive Date: 20110505
  Receipt Date: 20110505
  Transmission Date: 20111010
  Serious: No
  Sender: FDA-Public Use
  Company Number: None

PATIENT
  Age: 75 Year
  Sex: Female
  Weight: 48.9885 kg

DRUGS (1)
  1. SAVELLA [Suspect]
     Indication: FIBROMYALGIA
     Dosage: 12.5MG UP TO 100MG 2X PER DAY PO
     Route: 048
     Dates: start: 20110407, end: 20110420

REACTIONS (10)
  - NAUSEA [None]
  - IRRITABILITY [None]
  - ANXIETY [None]
  - INSOMNIA [None]
  - DEPRESSION [None]
  - NIGHTMARE [None]
  - AGITATION [None]
  - HEART RATE INCREASED [None]
  - ANGER [None]
  - FEELING HOT [None]
